FAERS Safety Report 15308111 (Version 1)
Quarter: 2018Q3

REPORT INFORMATION
  Report Type: Spontaneous
  Country: ES (occurrence: ES)
  Receive Date: 20180822
  Receipt Date: 20180822
  Transmission Date: 20181010
  Serious: Yes (Hospitalization)
  Sender: FDA-Public Use
  Company Number: ES-MYLANLABS-2018M1061946

PATIENT
  Age: 42 Year
  Sex: Female

DRUGS (3)
  1. AZATHIOPRINE. [Suspect]
     Active Substance: AZATHIOPRINE
     Dosage: DOSE WAS INCREASED TWO MONTHS PRIOR TO PRESENTATION
     Route: 065
  2. AZATHIOPRINE. [Suspect]
     Active Substance: AZATHIOPRINE
     Indication: OPTIC NEURITIS
     Route: 065
  3. PREDNISONE. [Concomitant]
     Active Substance: PREDNISONE
     Indication: OPTIC NEURITIS
     Dosage: THE DOSE WAS PROGRESSIVELY REDUCED TWO MONTHS PRIOR TO PRESENTATION
     Route: 065

REACTIONS (4)
  - Venoocclusive liver disease [Recovering/Resolving]
  - Haemolytic anaemia [Recovered/Resolved]
  - Ascites [Recovering/Resolving]
  - Toxicity to various agents [Recovering/Resolving]
